FAERS Safety Report 7153103-5 (Version None)
Quarter: 2010Q4

REPORT INFORMATION
  Report Type: 
  Country: None (occurrence: None)
  Receive Date: 20101208
  Receipt Date: 20101208
  Transmission Date: 20110411
  Serious: Yes (Other)
  Sender: FDA-Public Use
  Company Number: None

PATIENT
  Age: 60 Year
  Sex: Male
  Weight: 93 kg

DRUGS (3)
  1. DAPTOMYCIN [Suspect]
     Indication: DRUG HYPERSENSITIVITY
     Dosage: 4 MG/KG DAILY IV
     Route: 042
     Dates: start: 20101008, end: 20101016
  2. DAPTOMYCIN [Suspect]
     Indication: FEBRILE NEUTROPENIA
     Dosage: 4 MG/KG DAILY IV
     Route: 042
     Dates: start: 20101008, end: 20101016
  3. ROSUVASTATIN [Suspect]
     Indication: HYPERLIPIDAEMIA
     Dosage: 10 MG NIGHTLY PO
     Route: 048

REACTIONS (1)
  - BLOOD CREATINE PHOSPHOKINASE INCREASED [None]
